FAERS Safety Report 8554976-1 (Version None)
Quarter: 2012Q3

REPORT INFORMATION
  Report Type: 
  Country: None (occurrence: None)
  Receive Date: 20120731
  Receipt Date: 20070905
  Transmission Date: 20120928
  Serious: Yes (Death, Other)
  Sender: FDA-Public Use
  Company Number: CO-PFIZER INC-2012183932

PATIENT
  Age: 72 Year
  Sex: Female

DRUGS (4)
  1. LIPITOR [Suspect]
     Dosage: 20 MG, 1X/DAY
  2. NORVASC [Suspect]
     Dosage: 5 MG, 1X/DAY
  3. FUROSEMIDE [Concomitant]
     Dosage: 40 MG, 1X/DAY
  4. ACETYLSALICYLIC ACID [Concomitant]
     Dosage: 100 MG, 1X/DAY

REACTIONS (2)
  - DEATH [None]
  - VENOUS INSUFFICIENCY [None]
